FAERS Safety Report 8396142-9 (Version None)
Quarter: 2012Q2

REPORT INFORMATION
  Report Type: 
  Country: None (occurrence: None)
  Receive Date: 20120530
  Receipt Date: 20120522
  Transmission Date: 20120825
  Serious: Yes (Congenital Anomaly)
  Sender: FDA-Public Use
  Company Number: US-GLAXOSMITHKLINE-A0979128A

PATIENT
  Sex: Male

DRUGS (8)
  1. PAXIL [Suspect]
     Indication: ANXIETY
     Route: 064
     Dates: end: 20060101
  2. CELEBREX [Concomitant]
  3. MICRONOR [Concomitant]
  4. XANAX [Concomitant]
  5. CIPROFLOXACIN [Concomitant]
  6. LORCET-HD [Concomitant]
  7. PAXIL CR [Suspect]
     Indication: ANXIETY
     Route: 064
     Dates: end: 20060101
  8. ZOLOFT [Concomitant]
     Dates: start: 20060101

REACTIONS (3)
  - FOETAL EXPOSURE DURING PREGNANCY [None]
  - ATRIAL SEPTAL DEFECT [None]
  - CONGENITAL ARTERIAL MALFORMATION [None]
